FAERS Safety Report 13041927 (Version 1)
Quarter: 2016Q4

REPORT INFORMATION
  Report Type: Spontaneous
  Country: US (occurrence: US)
  Receive Date: 20161219
  Receipt Date: 20161219
  Transmission Date: 20170207
  Serious: Yes (Other)
  Sender: FDA-Public Use
  Company Number: US-ROCHE-1139285

PATIENT
  Age: 57 Year
  Sex: Male
  Weight: 88.2 kg

DRUGS (4)
  1. ZELBORAF [Suspect]
     Active Substance: VEMURAFENIB
     Route: 048
  2. IL-2 [Concomitant]
     Active Substance: ALDESLEUKIN
     Route: 065
     Dates: start: 20120529, end: 20120602
  3. XANAX [Concomitant]
     Active Substance: ALPRAZOLAM
  4. ZELBORAF [Suspect]
     Active Substance: VEMURAFENIB
     Indication: MALIGNANT MELANOMA
     Route: 048
     Dates: start: 20120706

REACTIONS (3)
  - Periorbital oedema [Unknown]
  - Rash [Recovered/Resolved]
  - Photosensitivity reaction [Recovering/Resolving]

NARRATIVE: CASE EVENT DATE: 20120913
